FAERS Safety Report 6277403-6 (Version None)
Quarter: 2009Q3

REPORT INFORMATION
  Report Type: 
  Country: None (occurrence: None)
  Receive Date: 20090722
  Receipt Date: 20090508
  Transmission Date: 20100115
  Serious: No
  Sender: FDA-Public Use
  Company Number: US-BRISTOL-MYERS SQUIBB COMPANY-14619613

PATIENT
  Sex: Female

DRUGS (1)
  1. COUMADIN [Suspect]

REACTIONS (3)
  - BLOOD FOLATE INCREASED [None]
  - BLOOD HOMOCYSTEINE INCREASED [None]
  - VITAMIN B6 INCREASED [None]
